FAERS Safety Report 25499240 (Version 1)
Quarter: 2025Q3

REPORT INFORMATION
  Report Type: Spontaneous
  Country: CO (occurrence: CO)
  Receive Date: 20250701
  Receipt Date: 20250701
  Transmission Date: 20251020
  Serious: Yes (Other)
  Sender: ABBVIE
  Company Number: CO-ABBVIE-6347601

PATIENT

DRUGS (2)
  1. SURVANTA [Suspect]
     Active Substance: BERACTANT
     Indication: Product used for unknown indication
     Route: 039
     Dates: start: 2020
  2. SURVANTA [Suspect]
     Active Substance: BERACTANT
     Indication: Product used for unknown indication
     Route: 039
     Dates: start: 202411

REACTIONS (1)
  - Pneumothorax [Unknown]
